FAERS Safety Report 7508182-X (Version None)
Quarter: 2011Q2

REPORT INFORMATION
  Report Type: 
  Country: None (occurrence: None)
  Receive Date: 20110527
  Receipt Date: 20110223
  Transmission Date: 20111010
  Serious: Yes (Death)
  Sender: FDA-Public Use
  Company Number: ES-CELGENEUS-144-50794-11023024

PATIENT
  Age: 76 Year
  Sex: Female

DRUGS (3)
  1. ERYTHROPOETIN [Concomitant]
     Route: 065
  2. VIDAZA [Suspect]
     Dosage: 75 MILLIGRAM/SQ. METER
     Route: 065
  3. G-CSF [Concomitant]
     Route: 065

REACTIONS (7)
  - HAEMORRHAGE [None]
  - PYREXIA [None]
  - NAUSEA [None]
  - CONSTIPATION [None]
  - VERTIGO [None]
  - VOMITING [None]
  - SKIN REACTION [None]
